FAERS Safety Report 8892642 (Version 1)
Quarter: 2012Q4

REPORT INFORMATION
  Report Type: Spontaneous
  Country: US (occurrence: None)
  Receive Date: 20121105
  Receipt Date: 20121105
  Transmission Date: 20130627
  Serious: Yes (Other)
  Sender: FDA-Public Use
  Company Number: None

PATIENT
  Age: 65 Year
  Sex: Female
  Weight: 65.77 kg

DRUGS (1)
  1. MULTIHANCE [Suspect]
     Indication: MRI
     Dosage: 20  mL  once  IV bolus
     Route: 040
     Dates: start: 20121024, end: 20121024

REACTIONS (3)
  - Peripheral coldness [None]
  - Burning sensation [None]
  - Hypersensitivity [None]
